FAERS Safety Report 8364164-X (Version None)
Quarter: 2012Q2

REPORT INFORMATION
  Report Type: 
  Country: None (occurrence: None)
  Receive Date: 20120516
  Receipt Date: 20120501
  Transmission Date: 20120825
  Serious: Yes (Other)
  Sender: FDA-Public Use
  Company Number: CA-JNJFOC-20120502002

PATIENT
  Sex: Female
  Weight: 71 kg

DRUGS (8)
  1. VITAMIN B-12 [Concomitant]
     Route: 065
  2. BENADRYL [Concomitant]
     Indication: PREMEDICATION
     Route: 048
  3. FOLIC ACID [Concomitant]
     Route: 065
  4. VITAMIN D [Concomitant]
     Route: 042
  5. BISOPROLOL FUMARATE [Concomitant]
     Route: 048
  6. REMICADE [Suspect]
     Indication: CROHN'S DISEASE
     Route: 042
     Dates: start: 20120306, end: 20120501
  7. METHOTREXATE [Concomitant]
     Route: 048
  8. SOLU-CORTEF [Concomitant]
     Indication: PREMEDICATION
     Route: 042

REACTIONS (1)
  - NEPHROLITHIASIS [None]
